FAERS Safety Report 21590657 (Version 1)
Quarter: 2022Q4

REPORT INFORMATION
  Report Type: Spontaneous
  Country: US (occurrence: None)
  Receive Date: 20221111
  Receipt Date: 20221111
  Transmission Date: 20230112
  Serious: Yes (Disabling)
  Sender: FDA-Public Use
  Company Number: None

PATIENT
  Age: 83 Year
  Sex: Male

DRUGS (14)
  1. MIDODRINE [Suspect]
     Active Substance: MIDODRINE
     Indication: Orthostatic hypotension
     Dosage: FREQUENCY : 3 TIMES A DAY;?
     Route: 048
     Dates: start: 20220727, end: 20220811
  2. Cholecalciferol 125 mcg capsule [Concomitant]
  3. Coenzyme Q10 10 mg capsule [Concomitant]
  4. Aspirin 81 mg tablet [Concomitant]
  5. Eliquis 2.5 mg 1 tablet twice daily [Concomitant]
  6. Flomax 0.4 mg capsule [Concomitant]
  7. Lipitor 40 mg tablet [Concomitant]
  8. Lovaza 1 g capsule [Concomitant]
  9. Lyrica 150 mg 1 capsule twice daily [Concomitant]
  10. Multivitamin tablet [Concomitant]
  11. Peridex Solution 0.12% [Concomitant]
  12. Proscar 5 mg tablet [Concomitant]
  13. Senna-S 8.6-50 mg tablet [Concomitant]
  14. Spiriva Handihaler 18 mcg capsule [Concomitant]

REACTIONS (2)
  - Nightmare [None]
  - Syncope [None]

NARRATIVE: CASE EVENT DATE: 20220804
